FAERS Safety Report 4948889-1 (Version None)
Quarter: 2006Q1

REPORT INFORMATION
  Report Type: 
  Country: None (occurrence: None)
  Receive Date: 20060321
  Receipt Date: 20060309
  Transmission Date: 20060701
  Serious: Yes (Life-Threatening, Hospitalization)
  Sender: FDA-Public Use
  Company Number: NSADSS2002021966

PATIENT
  Sex: Female

DRUGS (5)
  1. REMICADE [Suspect]
     Route: 041
     Dates: start: 20010321
  2. REMICADE [Suspect]
     Indication: RHEUMATOID ARTHRITIS
     Route: 041
     Dates: start: 20010321
  3. METHOTREXATE [Concomitant]
  4. STEROIDS [Concomitant]
  5. LEFLUNOMIDE [Concomitant]

REACTIONS (5)
  - BALANCE DISORDER [None]
  - DIARRHOEA [None]
  - DISSEMINATED TUBERCULOSIS [None]
  - GUILLAIN-BARRE SYNDROME [None]
  - LIVER FUNCTION TEST ABNORMAL [None]
